FAERS Safety Report 24862489 (Version 1)
Quarter: 2025Q1

REPORT INFORMATION
  Report Type: Spontaneous
  Country: CN (occurrence: CN)
  Receive Date: 20250120
  Receipt Date: 20250120
  Transmission Date: 20250408
  Serious: Yes (Other)
  Sender: PFIZER
  Company Number: CN-PFIZER INC-PV202500006628

PATIENT
  Age: 35 Year
  Sex: Male
  Weight: 61.5 kg

DRUGS (1)
  1. TIGECYCLINE [Suspect]
     Active Substance: TIGECYCLINE
     Indication: Symptomatic treatment
     Dosage: 10 MG, 1X/DAY
     Route: 041
     Dates: start: 20241114, end: 20241114

REACTIONS (2)
  - Nausea [Recovered/Resolved]
  - Retching [Recovered/Resolved]

NARRATIVE: CASE EVENT DATE: 20241114
